FAERS Safety Report 10765095 (Version 1)
Quarter: 2015Q1

REPORT INFORMATION
  Report Type: Spontaneous
  Country: US (occurrence: None)
  Receive Date: 20150204
  Receipt Date: 20150204
  Transmission Date: 20150721
  Serious: No
  Sender: FDA-Public Use
  Company Number: None

PATIENT
  Age: 58 Year
  Sex: Male
  Weight: 60 kg

DRUGS (1)
  1. TRAMADOL [Suspect]
     Active Substance: TRAMADOL
     Indication: SEIZURE
     Route: 048
     Dates: start: 20131002, end: 20140909

REACTIONS (1)
  - Seizure [None]

NARRATIVE: CASE EVENT DATE: 20141129
